FAERS Safety Report 25976861 (Version 1)
Quarter: 2025Q4

REPORT INFORMATION
  Report Type: Spontaneous
  Country: US (occurrence: US)
  Receive Date: 20251029
  Receipt Date: 20251029
  Transmission Date: 20260118
  Serious: No
  Sender: ETON PHARMACEUTICALS, INC
  Company Number: US-IPSEN Group, Research and Development-2025-05486

PATIENT

DRUGS (4)
  1. INCRELEX [Suspect]
     Active Substance: MECASERMIN
     Indication: Primary insulin like growth factor-1 deficiency
     Dosage: 0.16 MILLILITER, Q12H
     Route: 058
     Dates: start: 20241227
  2. FAMOTIDINE [Concomitant]
     Active Substance: FAMOTIDINE
  3. GUAIFENESIN [Concomitant]
     Active Substance: GUAIFENESIN
     Dosage: .5 MILLIGRAM
  4. NAPROXEN [Concomitant]
     Active Substance: NAPROXEN
     Dosage: 250 MILLIGRAM

REACTIONS (2)
  - Injection site pain [Unknown]
  - Injection site urticaria [Unknown]
